FAERS Safety Report 7053661-5 (Version None)
Quarter: 2010Q4

REPORT INFORMATION
  Report Type: 
  Country: None (occurrence: None)
  Receive Date: 20101014
  Receipt Date: 20101007
  Transmission Date: 20110411
  Serious: Yes (Other)
  Sender: FDA-Public Use
  Company Number: 2010SP053740

PATIENT
  Age: 24 Year
  Sex: Female
  Weight: 66 kg

DRUGS (2)
  1. NUVARING [Suspect]
     Indication: CONTRACEPTION
     Dosage: ; QM; VAG
     Route: 067
     Dates: start: 20100218, end: 20100828
  2. PAROXETINE HCL [Concomitant]

REACTIONS (7)
  - ACNE [None]
  - BREAST PAIN [None]
  - DISCOMFORT [None]
  - INCORRECT DRUG ADMINISTRATION DURATION [None]
  - MENSTRUATION DELAYED [None]
  - PNEUMONIA [None]
  - UTERINE DISORDER [None]
